FAERS Safety Report 10987725 (Version 2)
Quarter: 2015Q2

REPORT INFORMATION
  Report Type: Spontaneous
  Country: US (occurrence: US)
  Receive Date: 20150404
  Receipt Date: 20150525
  Transmission Date: 20150821
  Serious: No
  Sender: FDA-Public Use
  Company Number: US-JNJFOC-20121014534

PATIENT

DRUGS (2)
  1. CORTICOSTEROID (UNSPECIFIED) [Concomitant]
     Route: 065
  2. INFLIXIMAB, RECOMBINANT [Suspect]
     Active Substance: INFLIXIMAB
     Indication: INFLAMMATORY BOWEL DISEASE
     Dosage: 10 MG/KG(60%) AND 5 MG/KG (27%)
     Route: 042

REACTIONS (1)
  - Therapeutic response decreased [Unknown]
